FAERS Safety Report 8493303-5 (Version None)
Quarter: 2012Q3

REPORT INFORMATION
  Report Type: 
  Country: None (occurrence: None)
  Receive Date: 20120706
  Receipt Date: 20120702
  Transmission Date: 20120928
  Serious: No
  Sender: FDA-Public Use
  Company Number: US-PFIZER INC-2012121233

PATIENT
  Sex: Female
  Weight: 72.562 kg

DRUGS (2)
  1. ZIOPTAN [Suspect]
     Dosage: UNK
     Dates: end: 20120301
  2. XALATAN [Suspect]
     Indication: GLAUCOMA
     Dosage: 1 GTT (IN EACH EYE), 1X/DAY
     Route: 047
     Dates: start: 20101201

REACTIONS (7)
  - EYE IRRITATION [None]
  - EYELID OEDEMA [None]
  - HEADACHE [None]
  - EYE INFECTION [None]
  - OCULAR HYPERAEMIA [None]
  - BLEPHAROSPASM [None]
  - GROWTH OF EYELASHES [None]
